FAERS Safety Report 6361651-0 (Version None)
Quarter: 2009Q3

REPORT INFORMATION
  Report Type: 
  Country: None (occurrence: None)
  Receive Date: 20090918
  Receipt Date: 20090907
  Transmission Date: 20100115
  Serious: Yes (Life-Threatening, Hospitalization)
  Sender: FDA-Public Use
  Company Number: GB-PFIZER INC-2009264752

PATIENT
  Age: 33 Year

DRUGS (1)
  1. CHAMPIX [Suspect]
     Indication: SMOKING CESSATION THERAPY
     Dosage: 1 MG, 2X/DAY
     Route: 048
     Dates: start: 20090613, end: 20090825

REACTIONS (3)
  - DEPRESSION [None]
  - INTENTIONAL SELF-INJURY [None]
  - SUICIDAL IDEATION [None]
